FAERS Safety Report 10064671 (Version 2)
Quarter: 2014Q2

REPORT INFORMATION
  Report Type: Spontaneous
  Country: US (occurrence: US)
  Receive Date: 20140408
  Receipt Date: 20140421
  Transmission Date: 20141212
  Serious: Yes (Hospitalization)
  Sender: FDA-Public Use
  Company Number: US-SA-2014SA043521

PATIENT
  Age: 58 Year
  Sex: Female

DRUGS (2)
  1. FLUDARA [Suspect]
     Indication: CHRONIC LYMPHOCYTIC LEUKAEMIA
     Dosage: QD X 5Q 28 DAY CYCLE
     Route: 042
     Dates: start: 20130715, end: 20131001
  2. RITUXAN [Suspect]
     Indication: CHRONIC LYMPHOCYTIC LEUKAEMIA
     Dosage: Q CYCLE X5
     Route: 042
     Dates: start: 20130716, end: 20131001

REACTIONS (1)
  - Febrile neutropenia [Recovered/Resolved]
